FAERS Safety Report 11881795 (Version 1)
Quarter: 2015Q4

REPORT INFORMATION
  Report Type: Spontaneous
  Country: US (occurrence: None)
  Receive Date: 20151230
  Receipt Date: 20151230
  Transmission Date: 20160305
  Serious: No
  Sender: FDA-Public Use
  Company Number: None

PATIENT
  Age: 56 Year
  Sex: Female

DRUGS (1)
  1. HUMIRA [Suspect]
     Active Substance: ADALIMUMAB
     Indication: PSORIATIC ARTHROPATHY
     Dosage: 40MG/0.8ML EVERY 2 WEEKS SUBCUTANEOUSLY
     Route: 058
     Dates: start: 20151226, end: 20151226

REACTIONS (4)
  - Drug hypersensitivity [None]
  - Pruritus [None]
  - Urticaria [None]
  - Injection site pain [None]

NARRATIVE: CASE EVENT DATE: 20151226
